FAERS Safety Report 16006543 (Version 1)
Quarter: 2019Q1

REPORT INFORMATION
  Report Type: Spontaneous
  Country: US (occurrence: US)
  Receive Date: 20190226
  Receipt Date: 20190226
  Transmission Date: 20190418
  Serious: No
  Sender: FDA-Public Use
  Company Number: US-FERRINGPH-2018FE06684

PATIENT
  Sex: Female

DRUGS (1)
  1. STIMATE [Suspect]
     Active Substance: DESMOPRESSIN ACETATE
     Indication: HAEMORRHAGE
     Dosage: AS NEEDED DAILY FOR TWO DAYS
     Route: 045
     Dates: start: 20181118

REACTIONS (2)
  - Headache [Unknown]
  - Product use in unapproved indication [Unknown]
